FAERS Safety Report 18256492 (Version 3)
Quarter: 2020Q4

REPORT INFORMATION
  Report Type: Report from Study
  Country: None (occurrence: US)
  Receive Date: 20200911
  Receipt Date: 20201023
  Transmission Date: 20210113
  Serious: Yes (Other)
  Sender: FDA-Public Use
  Company Number: US-INSMED, INC.-US-INS-20-01562

PATIENT
  Age: 81 Year
  Sex: Female

DRUGS (2)
  1. ARIKAYCE [Suspect]
     Active Substance: AMIKACIN
     Indication: MYCOBACTERIAL INFECTION
     Route: 055
     Dates: start: 2020, end: 202008
  2. ARIKAYCE [Suspect]
     Active Substance: AMIKACIN
     Route: 055
     Dates: start: 20200831, end: 2020

REACTIONS (10)
  - Oropharyngeal pain [Unknown]
  - Haemoptysis [Unknown]
  - Rhonchi [Unknown]
  - Dry throat [Unknown]
  - Dry mouth [Unknown]
  - Mouth haemorrhage [Unknown]
  - Diarrhoea [Unknown]
  - Cough [Unknown]
  - Off label use [Unknown]
  - Pulmonary haemorrhage [Unknown]

NARRATIVE: CASE EVENT DATE: 2020
